FAERS Safety Report 14694552 (Version 3)
Quarter: 2019Q4

REPORT INFORMATION
  Report Type: Report from Study
  Country: US (occurrence: US)
  Receive Date: 20180329
  Receipt Date: 20191115
  Transmission Date: 20200122
  Serious: Yes (Hospitalization, Other)
  Sender: FDA-Public Use
  Company Number: US-SA-2018SA086757

PATIENT
  Age: 23 Year
  Sex: Female
  Weight: 96.6 kg

DRUGS (13)
  1. LEMTRADA [Suspect]
     Active Substance: ALEMTUZUMAB
     Dosage: 12 MG, QD
     Route: 041
     Dates: start: 20150810, end: 20150814
  2. SOLU-MEDROL [Concomitant]
     Active Substance: METHYLPREDNISOLONE SODIUM SUCCINATE
     Dosage: 1000 UG,UNK
     Route: 065
     Dates: start: 20180323
  3. ATROVENT [Concomitant]
     Active Substance: IPRATROPIUM BROMIDE
     Dosage: .06 %,UNK
     Route: 065
  4. TYSABRI [Concomitant]
     Active Substance: NATALIZUMAB
     Dosage: UNK UNK,UNK
     Route: 065
  5. PROVIGIL [Concomitant]
     Active Substance: MODAFINIL
     Dosage: 100 MG,QD
     Route: 048
  6. BUTALBITAL [Concomitant]
     Active Substance: BUTALBITAL
     Dosage: 100 MG,UNK
     Route: 065
  7. ZOLOFT [Concomitant]
     Active Substance: SERTRALINE HYDROCHLORIDE
     Dosage: 25 MG,QD
     Route: 048
  8. BUTALBITAL [Concomitant]
     Active Substance: BUTALBITAL
     Dosage: 1 DF,Q4H
     Route: 048
  9. ZOCOR [Concomitant]
     Active Substance: SIMVASTATIN
     Dosage: 10 MG,QD
     Route: 048
  10. LEMTRADA [Suspect]
     Active Substance: ALEMTUZUMAB
     Indication: MULTIPLE SCLEROSIS
     Dosage: 12 MG,QD
     Route: 041
     Dates: start: 20161018, end: 20161020
  11. TOPROL XL [Concomitant]
     Active Substance: METOPROLOL SUCCINATE
     Dosage: 25 MG,QD
     Route: 048
  12. JUNEL [Concomitant]
     Active Substance: ETHINYL ESTRADIOL\NORETHINDRONE ACETATE
     Dosage: UNK UNK,UNK
     Route: 048
  13. COPAXONE [Concomitant]
     Active Substance: GLATIRAMER ACETATE
     Dosage: UNK UNK,UNK
     Route: 065

REACTIONS (23)
  - Autoimmune thyroid disorder [Unknown]
  - Thyroid function test abnormal [Not Recovered/Not Resolved]
  - Urinary sediment present [Unknown]
  - Urinary tract infection [Unknown]
  - Hyperlipidaemia [Unknown]
  - Cervical dysplasia [Unknown]
  - Renal impairment [Unknown]
  - Autoimmune thyroiditis [Not Recovered/Not Resolved]
  - Major depression [Unknown]
  - Thyroiditis [Unknown]
  - Fatigue [Unknown]
  - Protein urine present [Unknown]
  - Lymphadenopathy [Not Recovered/Not Resolved]
  - Arthralgia [Unknown]
  - Somnolence [Unknown]
  - Hypothyroidism [Not Recovered/Not Resolved]
  - White blood cell count decreased [Unknown]
  - CD4 lymphocytes decreased [Unknown]
  - Thyroid mass [Not Recovered/Not Resolved]
  - Anxiety disorder [Unknown]
  - Migraine [Unknown]
  - Human papilloma virus test positive [Unknown]
  - Cervical dysplasia [Unknown]

NARRATIVE: CASE EVENT DATE: 2015
